FAERS Safety Report 10304689 (Version 1)
Quarter: 2014Q3

REPORT INFORMATION
  Report Type: Spontaneous
  Country: GB (occurrence: None)
  Receive Date: 20140709
  Receipt Date: 20140709
  Transmission Date: 20150326
  Serious: Yes (Hospitalization, Other)
  Sender: FDA-Public Use
  Company Number: GB-H14001-14-00140

PATIENT
  Sex: Female

DRUGS (2)
  1. PHENYTOIN. [Suspect]
     Active Substance: PHENYTOIN
     Indication: CONVULSION
     Dosage: TAKE 300 MG FOR THREE DAYS, THEN 200 MG ON THE FOURTH DAY, UNKNOWN
     Dates: start: 1984
  2. EPILIM [Suspect]
     Active Substance: VALPROATE SODIUM
     Indication: CONVULSION
     Dosage: 1000MG (500 MIG, 2 IN 1 DAY), (UNKNOWN)
     Dates: start: 1984

REACTIONS (3)
  - Convulsion [None]
  - Anticonvulsant drug level abnormal [None]
  - Feeling abnormal [None]

NARRATIVE: CASE EVENT DATE: 2010
